FAERS Safety Report 8766351 (Version 1)
Quarter: 2012Q4

REPORT INFORMATION
  Report Type: 
  Country: AU (occurrence: AU)
  Receive Date: 20120904
  Receipt Date: 20120904
  Transmission Date: 20130627
  Serious: Yes (Death)
  Sender: FDA-Public Use
  Company Number: AU-009507513-1208AUS011176

PATIENT

DRUGS (8)
  1. SAPHRIS [Suspect]
     Indication: PSYCHOTIC DISORDER
     Dosage: 10 mg, qd
     Dates: start: 20120308, end: 20120315
  2. SAPHRIS [Suspect]
     Dosage: 2 DF, UNK
     Dates: start: 201202
  3. IMOVANE [Suspect]
     Indication: PSYCHOTIC DISORDER
     Dosage: 7.5 mg, prn
     Dates: start: 20110215
  4. IMOVANE [Suspect]
     Dosage: 7.5 mg, prn
     Dates: start: 2012, end: 20120307
  5. OLANZAPINE [Suspect]
     Indication: PSYCHOTIC DISORDER
     Dosage: 10 mg, UNK
  6. OLANZAPINE [Suspect]
     Dosage: 20 mg, UNK
  7. OLANZAPINE [Suspect]
     Dosage: 5 mg, UNK
     Dates: start: 2012
  8. ZYPREXA [Suspect]
     Indication: PSYCHOTIC DISORDER
     Dosage: 10 mg, qd
     Dates: start: 20110930

REACTIONS (2)
  - Completed suicide [Fatal]
  - Dyspnoea [Unknown]
